FAERS Safety Report 4672633-9 (Version None)
Quarter: 2005Q2

REPORT INFORMATION
  Report Type: 
  Country: None (occurrence: None)
  Receive Date: 20050524
  Receipt Date: 20050509
  Transmission Date: 20051028
  Serious: Yes (Other)
  Sender: FDA-Public Use
  Company Number: US-GLAXOSMITHKLINE-A0557720A

PATIENT
  Age: 69 Year
  Sex: Female
  Weight: 68 kg

DRUGS (10)
  1. CITRUCEL CAPLETS [Suspect]
     Route: 048
     Dates: start: 20050501, end: 20050508
  2. ALLEGRA [Concomitant]
     Indication: MULTIPLE ALLERGIES
     Route: 048
  3. EVISTA [Concomitant]
     Indication: OSTEOPOROSIS PROPHYLAXIS
     Route: 048
  4. CLARINEX [Concomitant]
     Indication: MULTIPLE ALLERGIES
     Route: 048
  5. LIPITOR [Concomitant]
     Route: 048
  6. SINGULAIR [Concomitant]
     Indication: MULTIPLE ALLERGIES
     Route: 048
  7. NEXIUM [Concomitant]
     Route: 048
  8. LEVOTHYROXINE SODIUM [Concomitant]
     Indication: HYPOTHYROIDISM
     Route: 048
  9. LEXAPRO [Concomitant]
     Indication: ANXIETY
     Route: 048
  10. SENOKOT [Concomitant]

REACTIONS (3)
  - GASTROINTESTINAL INJURY [None]
  - RECTAL HAEMORRHAGE [None]
  - RECTAL TENESMUS [None]
